FAERS Safety Report 4322464-4 (Version None)
Quarter: 2004Q1

REPORT INFORMATION
  Report Type: 
  Country: None (occurrence: None)
  Receive Date: 20040323
  Receipt Date: 20040323
  Transmission Date: 20041129
  Serious: No
  Sender: FDA-Public Use
  Company Number: None

PATIENT
  Weight: 15.9 kg

DRUGS (13)
  1. TWICE-A-DAY 0.05% OXYMETAZOLINE MAJOR PHARMACEUTICALS [Suspect]
     Indication: BRONCHOSCOPY
     Dosage: DROPS ONCE NASAL
     Route: 045
     Dates: start: 20040215, end: 20040215
  2. ACETAMINOPHEN [Concomitant]
  3. DEX 5%.NACL 0.2% [Concomitant]
  4. HEPARIN [Concomitant]
  5. LANSOPRAZOLE [Concomitant]
  6. ONDANSETRON HCL [Concomitant]
  7. CEFTAZIDIME [Concomitant]
  8. OXACILLIN [Concomitant]
  9. ALBUTEROL [Concomitant]
  10. BUDESONIDE [Concomitant]
  11. DORNASE ALFA [Concomitant]
  12. TOBRAMYCIN [Concomitant]
  13. . [Concomitant]

REACTIONS (2)
  - BRONCHIAL INFECTION [None]
  - CULTURE POSITIVE [None]
